FAERS Safety Report 5685349-7 (Version None)
Quarter: 2008Q1

REPORT INFORMATION
  Report Type: 
  Country: None (occurrence: None)
  Receive Date: 20080328
  Receipt Date: 20080325
  Transmission Date: 20080703
  Serious: Yes (Death)
  Sender: FDA-Public Use
  Company Number: US-GILEAD-2008-0015827

PATIENT
  Age: 93 Year
  Sex: Female

DRUGS (3)
  1. LETAIRIS [Suspect]
     Indication: PULMONARY HYPERTENSION
     Route: 048
     Dates: start: 20070101
  2. TORSAMIDE [Concomitant]
  3. OXYGEN [Concomitant]
     Dates: start: 20080201

REACTIONS (1)
  - RIGHT VENTRICULAR FAILURE [None]
